FAERS Safety Report 15696094 (Version 4)
Quarter: 2019Q2

REPORT INFORMATION
  Report Type: Report from Study
  Country: US (occurrence: US)
  Receive Date: 20181206
  Receipt Date: 20190613
  Transmission Date: 20190711
  Serious: No
  Sender: FDA-Public Use
  Company Number: PHEH2018US050724

PATIENT
  Sex: Female

DRUGS (1)
  1. COSENTYX [Suspect]
     Active Substance: SECUKINUMAB
     Indication: PSORIASIS
     Dosage: 300 MG, QW
     Route: 058

REACTIONS (6)
  - Drug ineffective [Unknown]
  - Device malfunction [Unknown]
  - Incorrect dose administered [Unknown]
  - Pruritus [Unknown]
  - Injection site pain [Unknown]
  - Pain [Unknown]
